FAERS Safety Report 8138092-9 (Version None)
Quarter: 2012Q1

REPORT INFORMATION
  Report Type: 
  Country: None (occurrence: None)
  Receive Date: 20120215
  Receipt Date: 20120215
  Transmission Date: 20120608
  Serious: Yes (Other)
  Sender: FDA-Public Use
  Company Number: None

PATIENT
  Age: 56 Year
  Sex: Female
  Weight: 92.986 kg

DRUGS (1)
  1. DEXILANT [Suspect]
     Indication: GASTROOESOPHAGEAL REFLUX DISEASE
     Dosage: 60.0 MG
     Route: 048
     Dates: start: 20111115, end: 20111120

REACTIONS (19)
  - HEART RATE INCREASED [None]
  - PYREXIA [None]
  - HAEMATOMA [None]
  - BLOOD PRESSURE INCREASED [None]
  - CHEST DISCOMFORT [None]
  - DYSPHONIA [None]
  - CHEST PAIN [None]
  - DIZZINESS [None]
  - PAIN IN JAW [None]
  - DYSPNOEA [None]
  - VISUAL IMPAIRMENT [None]
  - CHILLS [None]
  - FATIGUE [None]
  - ASTHENIA [None]
  - SINUSITIS [None]
  - HEART RATE DECREASED [None]
  - HEART RATE IRREGULAR [None]
  - OROPHARYNGEAL PAIN [None]
  - BONE PAIN [None]
